FAERS Safety Report 17803243 (Version 1)
Quarter: 2020Q2

REPORT INFORMATION
  Report Type: Spontaneous
  Country: US (occurrence: US)
  Receive Date: 20200519
  Receipt Date: 20200519
  Transmission Date: 20200714
  Serious: Yes (Hospitalization)
  Sender: FDA-Public Use
  Company Number: None

PATIENT
  Age: 64 Year
  Sex: Male

DRUGS (1)
  1. CYCLOPHOSPHOMIDE [Suspect]
     Active Substance: CYCLOPHOSPHAMIDE
     Indication: MONOCLONAL GAMMOPATHY
     Dosage: ?          OTHER FREQUENCY:BID FOR 1 DAY/WEEK;?
     Route: 048
     Dates: start: 20200305

REACTIONS (1)
  - Surgery [None]

NARRATIVE: CASE EVENT DATE: 20200501
